FAERS Safety Report 4408659-X (Version None)
Quarter: 2004Q3

REPORT INFORMATION
  Report Type: 
  Country: None (occurrence: None)
  Receive Date: 20040723
  Receipt Date: 20040713
  Transmission Date: 20050211
  Serious: Yes (Life-Threatening, Hospitalization)
  Sender: FDA-Public Use
  Company Number: K200401033

PATIENT
  Age: 68 Year
  Sex: Male

DRUGS (8)
  1. ALTACE [Suspect]
     Indication: HYPERTENSION
     Dosage: 2.5 MG, BID, ORAL
     Route: 048
     Dates: start: 20000101
  2. ACTRAPID HUMAN(INSULIN HUMAN) SOLUTION, 32IU [Suspect]
     Indication: DIABETES MELLITUS INSULIN-DEPENDENT
     Dosage: 32 IU, QD, SUBCUTANEOUS; 24 IU, QD, SUBCUTANEOUS
     Route: 058
     Dates: start: 19980101, end: 20040201
  3. ACTRAPID HUMAN(INSULIN HUMAN) SOLUTION, 32IU [Suspect]
     Indication: DIABETES MELLITUS INSULIN-DEPENDENT
     Dosage: 32 IU, QD, SUBCUTANEOUS; 24 IU, QD, SUBCUTANEOUS
     Route: 058
     Dates: start: 20040201
  4. BELOC-ZOC MITE(METOPROLOL SUCCINATE) TABLET, 23.75MG [Suspect]
     Indication: HYPERTENSION
     Dosage: 23.75 MG, QD, ORAL
     Route: 048
     Dates: start: 20030601
  5. PROTAPHAN(INSULIN ISOPHANE, HUMAN BIOSYNTHETIC) SOLUTION [Suspect]
     Indication: DIABETES MELLITUS INSULIN-DEPENDENT
     Dosage: 22 IU, QD, SUBCUTANEOUS; 20 IU, QD, SUBCUTANEOUS
     Route: 058
     Dates: start: 19980101, end: 20040201
  6. PROTAPHAN(INSULIN ISOPHANE, HUMAN BIOSYNTHETIC) SOLUTION [Suspect]
     Indication: DIABETES MELLITUS INSULIN-DEPENDENT
     Dosage: 22 IU, QD, SUBCUTANEOUS; 20 IU, QD, SUBCUTANEOUS
     Route: 058
     Dates: start: 20040201
  7. ASS   CT-ARZNEIMITTEL (ACETYLSALICYLIC ACID) TABLET [Concomitant]
  8. TEGRETAL - SLOW RELEASE (CARBAMAZEPINE) TABLET [Concomitant]

REACTIONS (4)
  - ALCOHOLISM [None]
  - DRUG INTERACTION [None]
  - MARKEDLY REDUCED DIETARY INTAKE [None]
  - SHOCK HYPOGLYCAEMIC [None]
